FAERS Safety Report 19855194 (Version 3)
Quarter: 2021Q4

REPORT INFORMATION
  Report Type: Other
  Country: PT (occurrence: PT)
  Receive Date: 20210920
  Receipt Date: 20211215
  Transmission Date: 20220303
  Serious: Yes (Life-Threatening, Hospitalization)
  Sender: FDA-Public Use
  Company Number: PT-CELLTRION HEALTHCARE HUNGARY KFT-2021PT012015

PATIENT
  Sex: Female

DRUGS (6)
  1. HYDROXYCHLOROQUINE [Suspect]
     Active Substance: HYDROXYCHLOROQUINE
     Indication: Systemic lupus erythematosus
     Route: 065
  2. RITUXIMAB [Suspect]
     Active Substance: RITUXIMAB
     Indication: Systemic lupus erythematosus
     Route: 065
  3. LEFLUNOMIDE [Suspect]
     Active Substance: LEFLUNOMIDE
     Indication: Systemic lupus erythematosus
     Route: 065
  4. DEXAMETHASONE [Concomitant]
     Active Substance: DEXAMETHASONE
  5. OXYGEN SUPPLEMENT (HIGH FLOW NASAL CANNULA) [Concomitant]
  6. PREDNISOLONE [Concomitant]
     Active Substance: PREDNISOLONE

REACTIONS (10)
  - Pseudomonas infection [Recovered/Resolved]
  - Bronchoalveolar lavage abnormal [Recovered/Resolved]
  - Herpes simplex [Recovered/Resolved]
  - Acute respiratory failure [Recovered/Resolved]
  - Off label use [Unknown]
  - Oxygen therapy [Recovered/Resolved]
  - COVID-19 pneumonia [Recovered/Resolved]
  - Organising pneumonia [Recovered/Resolved]
  - Bacterial test positive [Recovered/Resolved]
  - Mechanical ventilation [Recovered/Resolved]
